FAERS Safety Report 9007584 (Version 5)
Quarter: 2013Q2

REPORT INFORMATION
  Report Type: Spontaneous
  Country: US (occurrence: US)
  Receive Date: 20130111
  Receipt Date: 20130617
  Transmission Date: 20140414
  Serious: Yes (Hospitalization)
  Sender: FDA-Public Use
  Company Number: US-BIOGENIDEC-2013BI001961

PATIENT
  Age: 67 Year
  Sex: Female

DRUGS (1)
  1. TYSABRI [Suspect]
     Indication: MULTIPLE SCLEROSIS
     Route: 042
     Dates: start: 20110829

REACTIONS (5)
  - Impaired healing [Not Recovered/Not Resolved]
  - Device dislocation [Recovered/Resolved]
  - Incision site infection [Not Recovered/Not Resolved]
  - Anxiety [Recovered/Resolved]
  - Weight bearing difficulty [Not Recovered/Not Resolved]
